FAERS Safety Report 14359681 (Version 1)
Quarter: 2018Q1

REPORT INFORMATION
  Report Type: Spontaneous
  Country: US (occurrence: US)
  Receive Date: 20180105
  Receipt Date: 20180105
  Transmission Date: 20180509
  Serious: No
  Sender: FDA-Public Use
  Company Number: -SAAVPROD-BI2017BI009683

PATIENT
  Age: 68 Year
  Sex: Female

DRUGS (5)
  1. RANITIDINE HYDROCHLORIDE. [Suspect]
     Active Substance: RANITIDINE HYDROCHLORIDE
     Indication: DYSPEPSIA
     Dosage: 1 TAB BID;  FORM STRENGTH: 75 MG; FORMULATION: TABLET? ADMINISTRATION CORRECT? YES ?ACTION(S) TAKEN
     Route: 048
     Dates: start: 20170214
  2. PRAVASTATIN SODIUM. [Concomitant]
     Active Substance: PRAVASTATIN SODIUM
     Indication: BLOOD CHOLESTEROL INCREASED
     Dosage: 1 TAB DAILY;  FORM STRENGTH: 20MG; FORMULATION: TABLET
     Route: 048
     Dates: start: 201701
  3. BRIMONIDINE TARTRATE/TIMOLOL MALEATE [Concomitant]
     Indication: GLAUCOMA
     Dosage: 1 DROP EACH EYE BID;
     Route: 050
  4. FLUTICASONE PROPIONATE. [Concomitant]
     Active Substance: FLUTICASONE PROPIONATE
     Indication: HYPERSENSITIVITY
     Dosage: 1 SPRAY EACH NOSTRIL DAILY;  FORMULATION: NASAL SPRAY;
     Route: 045
  5. BIFIDOBACTERIUM INFANTIS [Concomitant]
     Indication: SUPPLEMENTATION THERAPY
     Dosage: 1 CAP DAILY;  FORMULATION: CAPSULE;
     Route: 048

REACTIONS (2)
  - Abdominal pain [Unknown]
  - Flatulence [Unknown]

NARRATIVE: CASE EVENT DATE: 20170217
